FAERS Safety Report 23492612 (Version 2)
Quarter: 2024Q1

REPORT INFORMATION
  Report Type: Spontaneous
  Country: CA (occurrence: CA)
  Receive Date: 20240207
  Receipt Date: 20240320
  Transmission Date: 20240410
  Serious: Yes (Hospitalization)
  Sender: FDA-Public Use
  Company Number: CA-002147023-PHHY2018CA048035

PATIENT
  Age: 57 Year
  Sex: Female

DRUGS (19)
  1. METFORMIN [Suspect]
     Active Substance: METFORMIN HYDROCHLORIDE
     Indication: Product used for unknown indication
     Dosage: UNK
     Route: 065
  2. XOLAIR [Suspect]
     Active Substance: OMALIZUMAB
     Dosage: 300 MG, EVERY 4 WEEKS
     Route: 058
     Dates: start: 20190926
  3. XOLAIR [Suspect]
     Active Substance: OMALIZUMAB
     Dosage: 150 MG, BIW
     Route: 058
  4. XOLAIR [Suspect]
     Active Substance: OMALIZUMAB
     Dosage: 300 MG, EVERY 4 WEEKS
     Route: 058
     Dates: start: 20191219
  5. XOLAIR [Suspect]
     Active Substance: OMALIZUMAB
     Dosage: 300 MG, EVERY 4 WEEKS
     Route: 058
     Dates: start: 20190131
  6. XOLAIR [Suspect]
     Active Substance: OMALIZUMAB
     Dosage: 150 MG BIW
     Route: 065
  7. XOLAIR [Suspect]
     Active Substance: OMALIZUMAB
     Indication: Asthma
     Dosage: 150 MG, EVERY 4 WEEKS
     Route: 058
     Dates: start: 20180315
  8. XOLAIR [Suspect]
     Active Substance: OMALIZUMAB
     Indication: Chronic spontaneous urticaria
     Dosage: 300 MG, EVERY 4 WEEKS
     Route: 058
     Dates: start: 20180314
  9. DOXEPIN [Concomitant]
     Active Substance: DOXEPIN
     Dosage: 1 DOSAGE FORM, QD
     Route: 048
  10. DOXEPIN [Concomitant]
     Active Substance: DOXEPIN
     Indication: Product used for unknown indication
     Dosage: 1 DOSAGE FORM, PRN
     Route: 048
     Dates: start: 201701
  11. JANUVIA [Concomitant]
     Active Substance: SITAGLIPTIN PHOSPHATE
     Indication: Product used for unknown indication
     Dosage: 1 DOSAGE FORM, QD
     Route: 048
     Dates: start: 201710
  12. PREDNISONE [Concomitant]
     Active Substance: PREDNISONE
     Indication: Asthma
     Dosage: UNK
     Route: 065
  13. Reactine [Concomitant]
     Indication: Product used for unknown indication
     Dosage: 1 DOSAGE FORM, BID
     Route: 048
     Dates: start: 20180226
  14. SPIRIVA [Concomitant]
     Active Substance: TIOTROPIUM BROMIDE MONOHYDRATE
     Indication: Product used for unknown indication
     Dosage: 4 DOSAGE FORM, BID
     Route: 055
     Dates: start: 20220103, end: 20230213
  15. VENTOLIN [Concomitant]
     Active Substance: ALBUTEROL SULFATE
     Indication: Product used for unknown indication
     Dosage: 1 DOSAGE FORM, PRN
     Route: 065
     Dates: start: 19840506
  16. XOLAIR PRE-FILLED SYRINGE WITH YPSOMATE 100 AUTOINJECTOR [Concomitant]
     Indication: Chronic spontaneous urticaria
     Route: 065
  17. XOLAIR PRE-FILLED SYRINGE WITH YPSOMATE 100 AUTOINJECTOR [Concomitant]
     Indication: Asthma
  18. ZENHALE [Concomitant]
     Active Substance: FORMOTEROL FUMARATE\MOMETASONE FUROATE
     Indication: Product used for unknown indication
     Dosage: 4 DOSAGE FORM, QID
     Route: 055
     Dates: start: 20220303
  19. ZENHALE [Concomitant]
     Active Substance: FORMOTEROL FUMARATE\MOMETASONE FUROATE
     Dosage: 4 PUFFS, BID
     Route: 065

REACTIONS (11)
  - Chest pain [Unknown]
  - Drug hypersensitivity [Unknown]
  - Asthma [Unknown]
  - Pruritus [Recovered/Resolved]
  - Urticaria [Not Recovered/Not Resolved]
  - Ear infection [Unknown]
  - Influenza [Recovered/Resolved]
  - Weight decreased [Unknown]
  - Illness [Unknown]
  - Incorrect dose administered [Unknown]
  - Inappropriate schedule of product administration [Unknown]

NARRATIVE: CASE EVENT DATE: 20180315
